FAERS Safety Report 6120456-6 (Version None)
Quarter: 2009Q1

REPORT INFORMATION
  Report Type: 
  Country: None (occurrence: None)
  Receive Date: 20090317
  Receipt Date: 20090312
  Transmission Date: 20090719
  Serious: Yes (Hospitalization)
  Sender: FDA-Public Use
  Company Number: BR-JNJFOC-20090301372

PATIENT
  Sex: Female

DRUGS (7)
  1. ORTHO EVRA [Suspect]
     Indication: POLYCYSTIC OVARIES
     Dosage: ETHINYL ESTRADIOL 0.6 MG/ NORELGESTROMIN 6 MG
     Route: 062
  2. PANTOPRAZOLE SODIUM [Concomitant]
     Indication: OESOPHAGITIS
     Route: 065
  3. PANTOPRAZOLE SODIUM [Concomitant]
     Indication: INTESTINAL ULCER
     Route: 065
  4. TRILEPTAL [Concomitant]
     Indication: BIPOLAR DISORDER
     Dosage: 600MG IN MORNING AND 800MG AT NIGHT
     Route: 065
  5. RIVOTRIL [Concomitant]
     Indication: BIPOLAR DISORDER
     Dosage: HALF TABLET OF 1MG
     Route: 065
  6. JODOM [Concomitant]
     Indication: BIPOLAR DISORDER
     Route: 065
  7. BROMOPRIDE [Concomitant]
     Indication: NAUSEA
     Route: 065

REACTIONS (4)
  - HYPOGLYCAEMIA [None]
  - METRORRHAGIA [None]
  - OFF LABEL USE [None]
  - PRODUCT QUALITY ISSUE [None]
